FAERS Safety Report 5484195-7 (Version None)
Quarter: 2007Q4

REPORT INFORMATION
  Report Type: 
  Country: None (occurrence: None)
  Receive Date: 20071009
  Receipt Date: 20070920
  Transmission Date: 20080405
  Serious: Yes (Death, Disabling)
  Sender: FDA-Public Use
  Company Number: ENTC2007-0141

PATIENT
  Age: 65 Year
  Sex: Male

DRUGS (2)
  1. STALEVO 100 [Suspect]
     Indication: PARKINSON'S DISEASE
     Dosage: 100/25/200MG X3 ORAL
     Route: 048
     Dates: start: 20070401, end: 20070507
  2. OBSIDAN [Concomitant]

REACTIONS (3)
  - DIPLOPIA [None]
  - SLEEP DISORDER [None]
  - TREMOR [None]
